FAERS Safety Report 8200845-6 (Version None)
Quarter: 2012Q1

REPORT INFORMATION
  Report Type: 
  Country: None (occurrence: None)
  Receive Date: 20120223
  Receipt Date: 20120213
  Transmission Date: 20120608
  Serious: Yes (Other)
  Sender: FDA-Public Use
  Company Number: 2012031170

PATIENT
  Sex: Female

DRUGS (1)
  1. RHOPHYLAC [Suspect]
     Indication: PROPHYLAXIS AGAINST RH ISOIMMUNISATION

REACTIONS (3)
  - FOETAL-MATERNAL HAEMORRHAGE [None]
  - FOETAL DEATH [None]
  - MATERNAL EXPOSURE DURING PREGNANCY [None]
